FAERS Safety Report 18628289 (Version 1)
Quarter: 2020Q4

REPORT INFORMATION
  Report Type: Other
  Country: US (occurrence: US)
  Receive Date: 20201217
  Receipt Date: 20201217
  Transmission Date: 20210114
  Serious: Yes (Disabling, Other)
  Sender: FDA-Public Use
  Company Number: US-SAPTALIS PHARMACEUTICALS,LLC-000009

PATIENT
  Age: 29 Year
  Sex: Male

DRUGS (1)
  1. TRIAMCINOLONE ACETONIDE. [Suspect]
     Active Substance: TRIAMCINOLONE ACETONIDE
     Indication: CONDITION AGGRAVATED
     Dosage: INTRAVITREAL INJECTION OF TRIAMCINOLONE ACETONIDE SUSPENSION.

REACTIONS (4)
  - Visual acuity reduced [Unknown]
  - Necrotising retinitis [Unknown]
  - Infection reactivation [Unknown]
  - Blindness [Unknown]
